FAERS Safety Report 9289968 (Version 1)
Quarter: 2013Q2

REPORT INFORMATION
  Report Type: Spontaneous
  Country: US (occurrence: US)
  Receive Date: 20130515
  Receipt Date: 20130515
  Transmission Date: 20140414
  Serious: No
  Sender: FDA-Public Use
  Company Number: US-009507513-1305USA006830

PATIENT
  Sex: 0

DRUGS (1)
  1. NUVARING [Suspect]
     Dosage: UNK, THREE WEEKS IN, ONE WEEK OUT.
     Route: 067
     Dates: start: 201303

REACTIONS (4)
  - Product quality issue [Unknown]
  - Medical device complication [Unknown]
  - Medical device complication [Unknown]
  - No adverse event [Unknown]
